FAERS Safety Report 14583734 (Version 10)
Quarter: 2020Q1

REPORT INFORMATION
  Report Type: Spontaneous
  Country: US (occurrence: US)
  Receive Date: 20180228
  Receipt Date: 20200220
  Transmission Date: 20200409
  Serious: Yes (Hospitalization)
  Sender: FDA-Public Use
  Company Number: US-ACTELION-A-US2018-168363

PATIENT
  Age: 76 Year
  Sex: Female
  Weight: 70.3 kg

DRUGS (4)
  1. TRACLEER [Suspect]
     Active Substance: BOSENTAN
     Dosage: UNK
     Route: 048
  2. TRACLEER [Suspect]
     Active Substance: BOSENTAN
     Indication: PULMONARY ARTERIAL HYPERTENSION
     Dosage: 125 MG, BID
     Route: 048
  3. REMODULIN [Concomitant]
     Active Substance: TREPROSTINIL
  4. WARFARIN [Concomitant]
     Active Substance: WARFARIN

REACTIONS (10)
  - Device dislocation [Unknown]
  - Device leakage [Unknown]
  - Catheter management [Unknown]
  - Dyspnoea [Unknown]
  - Infusion site pruritus [Unknown]
  - Hypotension [Unknown]
  - Cough [Unknown]
  - International normalised ratio abnormal [Unknown]
  - Syncope [Unknown]
  - Gout [Unknown]

NARRATIVE: CASE EVENT DATE: 20180222
